FAERS Safety Report 8397120-6 (Version None)
Quarter: 2012Q2

REPORT INFORMATION
  Report Type: 
  Country: None (occurrence: None)
  Receive Date: 20120530
  Receipt Date: 20120524
  Transmission Date: 20120825
  Serious: Yes (Hospitalization)
  Sender: FDA-Public Use
  Company Number: FR-ROCHE-GNE319215

PATIENT
  Sex: Male

DRUGS (1)
  1. SOMATROPIN [Suspect]
     Indication: FOETAL GROWTH RESTRICTION
     Dosage: 0.038 MG/KG, 7 IN 7 DAYS
     Route: 058
     Dates: start: 20070912

REACTIONS (1)
  - CONDITION AGGRAVATED [None]
